FAERS Safety Report 9137600 (Version 2)
Quarter: 2013Q2

REPORT INFORMATION
  Report Type: Spontaneous
  Country: US (occurrence: US)
  Receive Date: 20130304
  Receipt Date: 20130604
  Transmission Date: 20140414
  Serious: Yes (Other)
  Sender: FDA-Public Use
  Company Number: CHPA2013US003560

PATIENT
  Age: 34 Year
  Sex: Male

DRUGS (2)
  1. THERAFLU FLU AND SORE THROAT [Suspect]
     Indication: INFLUENZA LIKE ILLNESS
     Dosage: 1 DF, QD
     Route: 048
     Dates: end: 20130221
  2. THERAFLU FLU AND SORE THROAT [Suspect]
     Indication: MUSCULAR WEAKNESS

REACTIONS (4)
  - Respiratory disorder [Not Recovered/Not Resolved]
  - Parosmia [Not Recovered/Not Resolved]
  - Pain [Recovered/Resolved]
  - Off label use [Unknown]
